FAERS Safety Report 9107471 (Version 1)
Quarter: 2013Q1

REPORT INFORMATION
  Report Type: Spontaneous
  Country: CL (occurrence: CL)
  Receive Date: 20130221
  Receipt Date: 20130221
  Transmission Date: 20140127
  Serious: Yes (Hospitalization, Other)
  Sender: FDA-Public Use
  Company Number: PHHY2012CL112123

PATIENT
  Age: 26 Year
  Sex: Female

DRUGS (2)
  1. GILENYA [Suspect]
     Indication: RELAPSING-REMITTING MULTIPLE SCLEROSIS
     Dosage: 0.5 MG, QD
     Route: 048
     Dates: start: 20121119
  2. PREGABALIN [Concomitant]
     Indication: PAIN
     Dosage: 75 MG, 75MG/DIA
     Route: 048
     Dates: start: 2010

REACTIONS (3)
  - Rash maculo-papular [Not Recovered/Not Resolved]
  - Heart rate decreased [Recovered/Resolved]
  - Bronchitis [Unknown]
